FAERS Safety Report 23380419 (Version 4)
Quarter: 2024Q4

REPORT INFORMATION
  Report Type: Spontaneous
  Country: ES (occurrence: ES)
  Receive Date: 20240109
  Receipt Date: 20241225
  Transmission Date: 20250115
  Serious: Yes (Hospitalization)
  Sender: AUROBINDO
  Company Number: ES-RECORDATI-2023009038

PATIENT
  Age: 86 Year
  Sex: Male
  Weight: 77 kg

DRUGS (16)
  1. DOXAZOSIN [Suspect]
     Active Substance: DOXAZOSIN\DOXAZOSIN MESYLATE
     Indication: Product used for unknown indication
     Dosage: 8 MILLIGRAM, ONCE A DAY, (8 MILLIGRAM, QD)
     Route: 048
     Dates: start: 2015
  2. HYDROCHLOROTHIAZIDE [Suspect]
     Active Substance: HYDROCHLOROTHIAZIDE
     Indication: Product used for unknown indication
     Dosage: 25 MILLIGRAM, ONCE A DAY, (25 MILLIGRAM, QD)
     Route: 048
     Dates: start: 2015
  3. LERCANIDIPINE [Suspect]
     Active Substance: LERCANIDIPINE
     Indication: Product used for unknown indication
     Dosage: 20 MILLIGRAM, ONCE A DAY, (20 MILLIGRAM, QD)
     Route: 048
     Dates: start: 2015
  4. CAPTOPRIL [Suspect]
     Active Substance: CAPTOPRIL
     Indication: Product used for unknown indication
     Dosage: 50 MILLIGRAM, ONCE A DAY, (50 MILLIGRAM, QD)
     Route: 048
     Dates: start: 2015
  5. ENZALUTAMIDE [Suspect]
     Active Substance: ENZALUTAMIDE
     Indication: Hormone-refractory prostate cancer
     Dosage: 160 MILLIGRAM, ONCE A DAY, (160 MILLIGRAM, QD)
     Route: 048
     Dates: start: 20230529, end: 20231212
  6. BISOPROLOL [Concomitant]
     Active Substance: BISOPROLOL
     Indication: Product used for unknown indication
     Dosage: 1.25 MILLIGRAM, ONCE A DAY, (1.25 MILLIGRAM, QD)
     Route: 048
     Dates: start: 2015
  7. FLUIMUCIL [Concomitant]
     Active Substance: ACETYLCYSTEINE
     Indication: Product used for unknown indication
     Dosage: 15 MILLILITER, ONCE A DAY, (15 MILLILITER, QD)
     Route: 048
     Dates: start: 20231204
  8. PREDNISONE [Concomitant]
     Active Substance: PREDNISONE
     Indication: Product used for unknown indication
     Dosage: 5 MILLIGRAM, TWO TIMES A DAY
     Route: 048
     Dates: start: 2010
  9. LACTULOSE [Concomitant]
     Active Substance: LACTULOSE
     Indication: Product used for unknown indication
     Dosage: 10 GRAM, AS NECESSARY, (10 GRAM, PRN)
     Route: 048
     Dates: start: 20230831
  10. EDOXABAN TOSYLATE [Concomitant]
     Active Substance: EDOXABAN TOSYLATE
     Indication: Product used for unknown indication
     Dosage: 30 MILLIGRAM, ONCE A DAY, (30 MILLIGRAM, QD)
     Route: 048
     Dates: start: 20230718
  11. OMEPRAZOLE [Concomitant]
     Active Substance: OMEPRAZOLE
     Indication: Product used for unknown indication
     Dosage: 20 MILLIGRAM, ONCE A DAY, (20 MILLIGRAM, QD)
     Route: 048
     Dates: start: 2015
  12. ACETAMINOPHEN [Concomitant]
     Active Substance: ACETAMINOPHEN
     Indication: Product used for unknown indication
     Dosage: 500 MILLIGRAM, 3 TIMES A DAY
     Route: 048
     Dates: start: 2010
  13. SIMVASTATIN [Concomitant]
     Active Substance: SIMVASTATIN
     Indication: Product used for unknown indication
     Dosage: 10 MILLIGRAM, ONCE A DAY, (10 MILLIGRAM, QD)
     Route: 048
     Dates: start: 2015
  14. FUROSEMIDE [Concomitant]
     Active Substance: FUROSEMIDE
     Indication: Product used for unknown indication
     Dosage: 40 MILLIGRAM, ONCE A DAY, (40 MILLIGRAM, QD)
     Route: 048
     Dates: start: 2005
  15. TAMSULOSIN HYDROCHLORIDE [Concomitant]
     Active Substance: TAMSULOSIN HYDROCHLORIDE
     Indication: Product used for unknown indication
     Dosage: 0.4 MILLIGRAM, ONCE A DAY, (0.4 MILLIGRAM, QD)
     Route: 048
     Dates: start: 2007
  16. CAPTOPRIL\HYDROCHLOROTHIAZIDE [Suspect]
     Active Substance: CAPTOPRIL\HYDROCHLOROTHIAZIDE
     Indication: Product used for unknown indication
     Dosage: 50 MILLIGRAM, DAILY
     Route: 048
     Dates: start: 2015

REACTIONS (4)
  - Upper respiratory tract infection [Recovered/Resolved]
  - Asthenia [Unknown]
  - Hypotension [Unknown]
  - Presyncope [Unknown]

NARRATIVE: CASE EVENT DATE: 20231212
